FAERS Safety Report 7293636-4 (Version None)
Quarter: 2011Q1

REPORT INFORMATION
  Report Type: 
  Country: None (occurrence: None)
  Receive Date: 20110215
  Receipt Date: 20110211
  Transmission Date: 20110831
  Serious: Yes (Hospitalization)
  Sender: FDA-Public Use
  Company Number: A0913455A

PATIENT
  Sex: Female

DRUGS (2)
  1. COREG CR [Suspect]
     Dosage: 40MG UNKNOWN
     Route: 048
     Dates: start: 20070810
  2. AVANDAMET [Suspect]
     Route: 048
     Dates: start: 20070810

REACTIONS (1)
  - HOSPITALISATION [None]
